FAERS Safety Report 10243999 (Version 1)
Quarter: 2014Q2

REPORT INFORMATION
  Report Type: Spontaneous
  Country: US (occurrence: US)
  Receive Date: 20140618
  Receipt Date: 20140618
  Transmission Date: 20141212
  Serious: No
  Sender: FDA-Public Use
  Company Number: US-009507513-1405USA002302

PATIENT
  Age: 62 Year
  Sex: Male
  Weight: 77.98 kg

DRUGS (1)
  1. CLARITIN-D-24 [Suspect]
     Indication: NASOPHARYNGITIS
     Dosage: 10 MG, Q6H
     Route: 048
     Dates: start: 20140422

REACTIONS (1)
  - Overdose [Unknown]
